FAERS Safety Report 8909499 (Version 1)
Quarter: 2012Q4

REPORT INFORMATION
  Report Type: 
  Country: JP (occurrence: JP)
  Receive Date: 20121115
  Receipt Date: 20121115
  Transmission Date: 20130627
  Serious: Yes (Other)
  Sender: FDA-Public Use
  Company Number: JP-009507513-1211JPN005279

PATIENT
  Age: 69 Year
  Sex: Female

DRUGS (1)
  1. JANUVIA TABLETS 50MG [Suspect]
     Dosage: UNK
     Route: 048
     Dates: start: 201108

REACTIONS (1)
  - Drug-induced liver injury [Unknown]
